FAERS Safety Report 12223104 (Version 2)
Quarter: 2016Q3

REPORT INFORMATION
  Report Type: Spontaneous
  Country: US (occurrence: US)
  Receive Date: 20160330
  Receipt Date: 20160705
  Transmission Date: 20161109
  Serious: Yes (Other)
  Sender: FDA-Public Use
  Company Number: US-RAPTOR-RAP-001038-2016

PATIENT
  Age: 4 Year
  Sex: Male
  Weight: 16 kg

DRUGS (7)
  1. PROCYSBI DELAYED-RELEASE [Suspect]
     Active Substance: CYSTEAMINE BITARTRATE
     Dosage: 425 MG, QD PM
     Route: 048
     Dates: start: 201606
  2. PROCYSBI DELAYED-RELEASE [Suspect]
     Active Substance: CYSTEAMINE BITARTRATE
     Dosage: 425 MG, BID
     Route: 048
     Dates: start: 201601, end: 201603
  3. PROCYSBI DELAYED-RELEASE [Suspect]
     Active Substance: CYSTEAMINE BITARTRATE
     Dosage: 375 MG EVERY 12 HOURS
     Route: 048
     Dates: start: 201404, end: 201406
  4. PROCYSBI DELAYED-RELEASE [Suspect]
     Active Substance: CYSTEAMINE BITARTRATE
     Dosage: 400 MG, BID
     Route: 048
     Dates: start: 201603, end: 201606
  5. PROCYSBI DELAYED-RELEASE [Suspect]
     Active Substance: CYSTEAMINE BITARTRATE
     Dosage: 400 MG, BID
     Route: 048
     Dates: start: 201406, end: 201601
  6. PROCYSBI DELAYED-RELEASE [Suspect]
     Active Substance: CYSTEAMINE BITARTRATE
     Indication: CYSTINOSIS
     Dosage: 400 MG, QD AM
     Route: 048
     Dates: start: 201606
  7. PROCYSBI DELAYED-RELEASE [Suspect]
     Active Substance: CYSTEAMINE BITARTRATE
     Dosage: 300 MG EVERY 12 HOURS
     Route: 048
     Dates: start: 201302, end: 201404

REACTIONS (3)
  - Papilloedema [Recovering/Resolving]
  - Blood alkaline phosphatase increased [Unknown]
  - Vomiting [Recovered/Resolved]

NARRATIVE: CASE EVENT DATE: 201603
